FAERS Safety Report 9795553 (Version 1)
Quarter: 2014Q1

REPORT INFORMATION
  Report Type: Spontaneous
  Country: US (occurrence: US)
  Receive Date: 20140103
  Receipt Date: 20140103
  Transmission Date: 20141002
  Serious: Yes (Other)
  Sender: FDA-Public Use
  Company Number: US-BAYER-2014-000773

PATIENT
  Age: 45 Year
  Sex: Female
  Weight: 68.48 kg

DRUGS (5)
  1. YAZ [Suspect]
  2. HYDROCODONE W/APAP [Concomitant]
     Indication: PAIN
     Dosage: 7.5/750 EVERY 4 HOURS AS NEEDED
  3. AMBIEN [Concomitant]
     Dosage: 10 MG, HS
  4. CYCLOBENZAPRINE [Concomitant]
     Dosage: 10 MG, TID
  5. MOTRIN [Concomitant]
     Indication: PAIN
     Dosage: 600 MG, EVERY 12 HOURS AS NEEDED

REACTIONS (1)
  - Pulmonary embolism [Recovered/Resolved]
